FAERS Safety Report 6318501-8 (Version None)
Quarter: 2009Q3

REPORT INFORMATION
  Report Type: 
  Country: None (occurrence: None)
  Receive Date: 20090821
  Receipt Date: 20090817
  Transmission Date: 20100115
  Serious: Yes (Hospitalization, Other)
  Sender: FDA-Public Use
  Company Number: US-ABBOTT-09P-163-0582663-00

PATIENT
  Sex: Male
  Weight: 63.56 kg

DRUGS (11)
  1. HUMIRA [Suspect]
     Indication: CROHN'S DISEASE
     Dates: start: 20090528, end: 20090528
  2. HUMIRA [Suspect]
  3. HYDROMORPHONE HCL [Concomitant]
     Indication: PAIN
  4. PREDNISONE [Concomitant]
     Indication: CROHN'S DISEASE
  5. PENTASA [Concomitant]
     Indication: CROHN'S DISEASE
  6. ATIVAN [Concomitant]
     Indication: ANXIETY
  7. PROZAC [Concomitant]
     Indication: DEPRESSION
  8. DIAZEPAM [Concomitant]
     Indication: ANXIETY
  9. FENTANYL [Concomitant]
     Indication: PAIN
     Route: 062
  10. TYLENOL (CAPLET) [Concomitant]
     Indication: PAIN
  11. PRILOSEC [Concomitant]
     Indication: GASTROOESOPHAGEAL REFLUX DISEASE

REACTIONS (4)
  - ABDOMINAL ADHESIONS [None]
  - CROHN'S DISEASE [None]
  - SMALL INTESTINAL STENOSIS [None]
  - VOMITING [None]
